FAERS Safety Report 18106730 (Version 1)
Quarter: 2020Q3

REPORT INFORMATION
  Report Type: Spontaneous
  Country: US (occurrence: US)
  Receive Date: 20200804
  Receipt Date: 20200804
  Transmission Date: 20201103
  Serious: Yes (Hospitalization)
  Sender: FDA-Public Use
  Company Number: US-PFIZER INC-2020290595

PATIENT
  Age: 54 Year
  Sex: Male

DRUGS (8)
  1. SPIRONOLACTONE. [Suspect]
     Active Substance: SPIRONOLACTONE
     Indication: ACUTE MYOCARDIAL INFARCTION
     Dosage: UNK, DAILY
     Dates: start: 1972
  2. FUROSEMIDE. [Suspect]
     Active Substance: FUROSEMIDE
     Dosage: UNK (REPEATED DOSES FROM 80 TO 200 MG)
     Route: 042
     Dates: start: 197211, end: 197211
  3. DIGOXIN. [Suspect]
     Active Substance: DIGOXIN
     Dosage: 0.25 MG, DAILY
     Dates: start: 19721219
  4. DIGOXIN. [Suspect]
     Active Substance: DIGOXIN
     Dosage: UNK
     Dates: start: 197211
  5. FUROSEMIDE. [Suspect]
     Active Substance: FUROSEMIDE
     Dosage: 80 MG, 2X/DAY
     Dates: start: 19721219
  6. FUROSEMIDE. [Suspect]
     Active Substance: FUROSEMIDE
     Indication: URINARY RETENTION
     Dosage: UNK, DAILY
     Dates: start: 1972, end: 1972
  7. DIGOXIN. [Suspect]
     Active Substance: DIGOXIN
     Dosage: UNK, DAILY
     Dates: start: 1972, end: 1972
  8. FUROSEMIDE. [Suspect]
     Active Substance: FUROSEMIDE
     Dosage: UNK (OCCASIONAL INTRAVENOUS DOSES OF 20 TO 40 MG)
     Route: 042
     Dates: start: 197212, end: 197212

REACTIONS (2)
  - Asthenia [Unknown]
  - Drug ineffective [Recovering/Resolving]

NARRATIVE: CASE EVENT DATE: 1972
